FAERS Safety Report 11628978 (Version 1)
Quarter: 2015Q4

REPORT INFORMATION
  Report Type: Other
  Country: US (occurrence: US)
  Receive Date: 20151014
  Receipt Date: 20151014
  Transmission Date: 20160304
  Serious: Yes (Other)
  Sender: FDA-Public Use
  Company Number: US-SHIRE-US201512584

PATIENT
  Sex: Male

DRUGS (1)
  1. ELAPRASE [Suspect]
     Active Substance: IDURSULFASE
     Indication: MUCOPOLYSACCHARIDOSIS II
     Dosage: 24 MG(4 VIALS), 1X/WEEK
     Route: 041
     Dates: start: 20070716

REACTIONS (8)
  - Body temperature decreased [Unknown]
  - Blood pressure fluctuation [Unknown]
  - Tremor [Unknown]
  - Head titubation [Unknown]
  - Syncope [Not Recovered/Not Resolved]
  - Cardiac disorder [Unknown]
  - Disease progression [Unknown]
  - Neurological symptom [Unknown]

NARRATIVE: CASE EVENT DATE: 2015
